FAERS Safety Report 18622896 (Version 1)
Quarter: 2020Q4

REPORT INFORMATION
  Report Type: Spontaneous
  Country: US (occurrence: US)
  Receive Date: 20201215
  Receipt Date: 20201215
  Transmission Date: 20210114
  Serious: No
  Sender: FDA-Public Use
  Company Number: None

PATIENT
  Age: 24 Year
  Sex: Female

DRUGS (1)
  1. BOSENTAN 62.5 MG TABLETS 60/BO (TEVA): [Suspect]
     Active Substance: BOSENTAN
     Indication: PULMONARY ARTERIAL HYPERTENSION
     Route: 048
     Dates: start: 20201111, end: 20201210

REACTIONS (4)
  - Weight increased [None]
  - Swelling [None]
  - Abdominal distension [None]
  - Drug intolerance [None]

NARRATIVE: CASE EVENT DATE: 20201215
